FAERS Safety Report 13380540 (Version 1)
Quarter: 2017Q1

REPORT INFORMATION
  Report Type: Report from Study
  Country: US (occurrence: US)
  Receive Date: 20170329
  Receipt Date: 20170329
  Transmission Date: 20170429
  Serious: Yes (Other)
  Sender: FDA-Public Use
  Company Number: US-BRISTOL-MYERS SQUIBB COMPANY-BMS-2017-026929

PATIENT
  Age: 22 Year
  Sex: Male

DRUGS (1)
  1. ARIPIPRAZOLE. [Suspect]
     Active Substance: ARIPIPRAZOLE
     Indication: SCHIZOPHRENIA
     Dosage: 1 DF, UNK
     Route: 065

REACTIONS (8)
  - Suicide attempt [Unknown]
  - Delusion [Unknown]
  - Therapeutic response decreased [Unknown]
  - Blunted affect [Unknown]
  - Social avoidant behaviour [Unknown]
  - Emotional poverty [Unknown]
  - Cognitive disorder [Unknown]
  - Drug ineffective [Unknown]
